FAERS Safety Report 25050951 (Version 2)
Quarter: 2025Q1

REPORT INFORMATION
  Report Type: Spontaneous
  Country: CN (occurrence: CN)
  Receive Date: 20250307
  Receipt Date: 20250311
  Transmission Date: 20250408
  Serious: Yes (Life-Threatening)
  Sender: PFIZER
  Company Number: CN-PFIZER INC-202500049290

PATIENT
  Age: 80 Year
  Sex: Female

DRUGS (14)
  1. AZITHROMYCIN [Suspect]
     Active Substance: AZITHROMYCIN
     Indication: Pneumonia legionella
     Dosage: 0.5 G, QD
     Route: 041
  2. MOXIFLOXACIN [Suspect]
     Active Substance: MOXIFLOXACIN
     Indication: Pneumonia legionella
     Dosage: 0.4 G, QD
     Route: 041
  3. VORICONAZOLE [Concomitant]
     Active Substance: VORICONAZOLE
     Indication: Fungal infection
     Dosage: 0.2 G, Q12H
     Route: 041
  4. IMIPENEM AND CILASTATIN [Concomitant]
     Active Substance: CILASTATIN SODIUM\IMIPENEM
     Indication: Bacterial infection
     Dosage: 0.5 G, Q6H
     Route: 041
  5. TIOTROPIUM [Concomitant]
     Active Substance: TIOTROPIUM
  6. IRBESARTAN [Concomitant]
     Active Substance: IRBESARTAN
  7. ATORVASTATIN [Concomitant]
     Active Substance: ATORVASTATIN
  8. CEFOTAXIME [Concomitant]
     Active Substance: CEFOTAXIME SODIUM
     Indication: Anti-infective therapy
     Dosage: 2.0 G, Q12H
     Route: 041
  9. METHYLPREDNISOLONE [Concomitant]
     Active Substance: METHYLPREDNISOLONE
     Dosage: 20 MG, QD
     Route: 042
  10. BUDESONIDE [Concomitant]
     Active Substance: BUDESONIDE
     Indication: Bronchospasm
     Dosage: 2 MG, 2X/DAY
     Route: 055
  11. TERBUTALINE [Concomitant]
     Active Substance: TERBUTALINE
     Indication: Bronchospasm
     Dosage: 5 MG, 2X/DAY
     Route: 055
  12. CEFOPERAZONE\SULBACTAM [Concomitant]
     Active Substance: CEFOPERAZONE\SULBACTAM
     Indication: Pseudomonas infection
     Dosage: 2.0 G, Q8H
     Route: 041
  13. FLUCONAZOLE [Concomitant]
     Active Substance: FLUCONAZOLE
     Indication: Candida infection
     Dosage: 0.2 G, QD
     Route: 041
  14. FLUCONAZOLE [Concomitant]
     Active Substance: FLUCONAZOLE
     Indication: Candida infection
     Dosage: 0.2 G, QD
     Route: 048

REACTIONS (1)
  - Drug ineffective [Unknown]
